FAERS Safety Report 21730269 (Version 1)
Quarter: 2022Q4

REPORT INFORMATION
  Report Type: Report from Study
  Country: US (occurrence: US)
  Receive Date: 20221214
  Receipt Date: 20221214
  Transmission Date: 20230112
  Serious: Yes (Other)
  Sender: FDA-Public Use
  Company Number: US-ABBVIE-4234630

PATIENT
  Sex: Female

DRUGS (1)
  1. RINVOQ [Suspect]
     Active Substance: UPADACITINIB
     Indication: Rheumatoid arthritis
     Route: 048

REACTIONS (4)
  - Oedema peripheral [Recovering/Resolving]
  - Osteoporosis [Not Recovered/Not Resolved]
  - Rheumatoid arthritis [Unknown]
  - Trigger finger [Not Recovered/Not Resolved]

NARRATIVE: CASE EVENT DATE: 20220101
